FAERS Safety Report 4650446-1 (Version None)
Quarter: 2005Q3

REPORT INFORMATION
  Report Type: 
  Country: None (occurrence: None)
  Receive Date: 20050429
  Receipt Date: 20050419
  Transmission Date: 20060218
  Serious: Yes (Hospitalization)
  Sender: FDA-Public Use
  Company Number: 2005-01342

PATIENT
  Age: 49 Year
  Sex: Male

DRUGS (8)
  1. ETOPOSIDE [Suspect]
     Indication: THYMOMA
     Dosage: 120 MG/M2 DAYS 1,3,5 INTRAVENOUS; DAYS 1,3,5 CHEMOTHERAPY, INTRAVENOUS
     Route: 042
     Dates: start: 20040501
  2. ETOPOSIDE [Suspect]
     Indication: THYMOMA
     Dosage: 120 MG/M2 DAYS 1,3,5 INTRAVENOUS; DAYS 1,3,5 CHEMOTHERAPY, INTRAVENOUS
     Route: 042
     Dates: start: 20040601
  3. DOXORUBICIN [Suspect]
     Indication: THYMOMA
     Dosage: 50 MG/M2, SINGLE ON DAY 1, INTRAVENOUS
     Route: 042
     Dates: start: 20040501
  4. CISPLATIN [Suspect]
     Indication: THYMOMA
     Dosage: 100 MG/M2, SINGLE ON DAY 1, INTRAVENOUS
     Route: 042
     Dates: start: 20040501
  5. CISPLATIN [Suspect]
     Indication: THYMOMA
     Dosage: 100 MG/M2, SINGLE ON DAY 1, INTRAVENOUS
     Route: 042
     Dates: start: 20040601
  6. DEXAMETHASONE [Concomitant]
  7. ONDANSETRON [Concomitant]
  8. METOCLOPRAMIDE [Concomitant]

REACTIONS (3)
  - CONDITION AGGRAVATED [None]
  - MYASTHENIA GRAVIS [None]
  - PLASMAPHERESIS [None]
